FAERS Safety Report 16826910 (Version 1)
Quarter: 2019Q3

REPORT INFORMATION
  Report Type: Spontaneous
  Country: GB (occurrence: GB)
  Receive Date: 20190919
  Receipt Date: 20190919
  Transmission Date: 20191005
  Serious: Yes (Other)
  Sender: FDA-Public Use
  Company Number: GB-MYLANLABS-2019M1086447

PATIENT
  Age: 43 Year
  Sex: Female

DRUGS (3)
  1. DECAPEPTYL (ACETATE) [Suspect]
     Active Substance: TRIPTORELIN ACETATE
     Indication: TRANSGENDER HORMONAL THERAPY
     Dosage: UNKNOWN
     Route: 065
  2. ESTRADIOL. [Suspect]
     Active Substance: ESTRADIOL
     Indication: TRANSGENDER HORMONAL THERAPY
     Dosage: UNK (COATED TABLET)
  3. DECAPEPTYL (ACETATE) [Suspect]
     Active Substance: TRIPTORELIN ACETATE
     Indication: PRODUCT USED FOR UNKNOWN INDICATION
     Dosage: UNK

REACTIONS (6)
  - Interstitial lung disease [Unknown]
  - Myositis [Unknown]
  - Overlap syndrome [Unknown]
  - Off label use [Unknown]
  - Raynaud^s phenomenon [Unknown]
  - Gastrooesophageal reflux disease [Unknown]
